FAERS Safety Report 15881030 (Version 1)
Quarter: 2019Q1

REPORT INFORMATION
  Report Type: Spontaneous
  Country: FR (occurrence: FR)
  Receive Date: 20190128
  Receipt Date: 20190128
  Transmission Date: 20190417
  Serious: Yes (Death)
  Sender: FDA-Public Use
  Company Number: FR-MYLANLABS-2019M1007101

PATIENT
  Age: 83 Year
  Sex: Female
  Weight: 89 kg

DRUGS (6)
  1. PHLOROGLUCINOL/TRIMETHYLPHLOROGLUCINOL ARROW [Suspect]
     Active Substance: PHLOROGLUCINOL\1,3,5-TRIMETHOXYBENZENE
     Indication: PAIN
     Dosage: 2 DOSAGE FORM, QD
     Route: 042
     Dates: start: 20180624, end: 20180627
  2. PHYTOMENADIONE [Suspect]
     Active Substance: PHYTONADIONE
     Indication: PRODUCT USED FOR UNKNOWN INDICATION
     Dosage: 1 DOSAGE FORM, QD
     Route: 042
     Dates: start: 20180624, end: 20180629
  3. NEFOPAM [Suspect]
     Active Substance: NEFOPAM
     Indication: PAIN
     Dosage: 5 DOSAGE FORM, QD
     Route: 042
     Dates: start: 20180624, end: 20180628
  4. ATORVASTATIN [Suspect]
     Active Substance: ATORVASTATIN
     Indication: PRODUCT USED FOR UNKNOWN INDICATION
     Dosage: 10 MILLIGRAM, QD
     Route: 048
     Dates: end: 20180627
  5. LORAZEPAM MYLAN [Suspect]
     Active Substance: LORAZEPAM
     Indication: ANXIETY
     Dosage: 5 MILLIGRAM, QD
     Route: 048
     Dates: end: 20180627
  6. TRIMEBUTINE [Suspect]
     Active Substance: TRIMEBUTINE
     Indication: PAIN
     Dosage: 200 MILLIGRAM, QD
     Route: 042
     Dates: start: 20180624, end: 20180630

REACTIONS (2)
  - Acute kidney injury [Fatal]
  - Anaemia [Fatal]

NARRATIVE: CASE EVENT DATE: 20180625
